FAERS Safety Report 4380656-2 (Version None)
Quarter: 2004Q2

REPORT INFORMATION
  Report Type: 
  Country: None (occurrence: None)
  Receive Date: 20040618
  Receipt Date: 20040610
  Transmission Date: 20050107
  Serious: Yes (Hospitalization)
  Sender: FDA-Public Use
  Company Number: US-ROCHE-370719

PATIENT
  Age: 50 Year
  Sex: Male
  Weight: 82.3 kg

DRUGS (3)
  1. PEG-INTERFERON ALFA 2A (RO 25-8310) [Suspect]
     Indication: HEPATITIS C
     Route: 065
     Dates: start: 20040415
  2. RIBAVIRIN [Suspect]
     Indication: HEPATITIS C
     Route: 065
     Dates: start: 20040415
  3. BLINDED POLYENYLPHOSPHATIDYLCHOLINE [Concomitant]
     Indication: HEPATITIS C
     Route: 048
     Dates: start: 20040415

REACTIONS (9)
  - ANGER [None]
  - DECREASED APPETITE [None]
  - DISCOMFORT [None]
  - DYSPNOEA [None]
  - HAEMATOCRIT DECREASED [None]
  - HAEMOGLOBIN DECREASED [None]
  - INFLUENZA LIKE ILLNESS [None]
  - SOMNOLENCE [None]
  - WEIGHT DECREASED [None]
